FAERS Safety Report 11185020 (Version 2)
Quarter: 2015Q3

REPORT INFORMATION
  Report Type: Report from Study
  Country: US (occurrence: US)
  Receive Date: 20150612
  Receipt Date: 20150903
  Transmission Date: 20151125
  Serious: Yes (Hospitalization)
  Sender: FDA-Public Use
  Company Number: US-SA-2015SA082448

PATIENT
  Age: 67 Year
  Sex: Male
  Weight: 85.4 kg

DRUGS (5)
  1. ELOXATIN [Suspect]
     Active Substance: OXALIPLATIN
     Indication: ADENOCARCINOMA OF COLON
     Dosage: FREQUENCY: OVER 2 HOURS A DAY
     Route: 042
     Dates: start: 20121231, end: 20130218
  2. LEUCOVORIN CALCIUM. [Suspect]
     Active Substance: LEUCOVORIN CALCIUM
     Indication: ADENOCARCINOMA OF COLON
     Dosage: FREQUENCY: OVER 2 HOURS A DAY
     Route: 042
     Dates: start: 20121231, end: 20130218
  3. 5-FU [Suspect]
     Active Substance: FLUOROURACIL
     Indication: ADENOCARCINOMA OF COLON
     Route: 040
     Dates: start: 20121231
  4. BLINDED THERAPY [Suspect]
     Active Substance: INVESTIGATIONAL PRODUCT
     Indication: ADENOCARCINOMA OF COLON
     Route: 048
     Dates: start: 20130114, end: 20130226
  5. 5-FU [Suspect]
     Active Substance: FLUOROURACIL
     Indication: ADENOCARCINOMA OF COLON
     Dosage: FREQUENCY: 46-48 HOURS
     Route: 042
     Dates: start: 20121231, end: 20130218

REACTIONS (1)
  - Glucose tolerance impaired [Recovered/Resolved]

NARRATIVE: CASE EVENT DATE: 20130226
